FAERS Safety Report 10855744 (Version 2)
Quarter: 2015Q1

REPORT INFORMATION
  Report Type: Spontaneous
  Country: GB (occurrence: GB)
  Receive Date: 20150223
  Receipt Date: 20150319
  Transmission Date: 20150721
  Serious: Yes (Hospitalization, Other)
  Sender: FDA-Public Use
  Company Number: GB-TEVA-541391ISR

PATIENT
  Age: 72 Year
  Sex: Male

DRUGS (6)
  1. MIRTAZAPINE. [Suspect]
     Active Substance: MIRTAZAPINE
     Indication: PRODUCT USED FOR UNKNOWN INDICATION
     Dosage: 30 MILLIGRAM DAILY; IN THE EVENING
     Route: 065
  2. FINASTERIDE. [Suspect]
     Active Substance: FINASTERIDE
     Indication: PRODUCT USED FOR UNKNOWN INDICATION
     Route: 065
  3. CARBIDOPA/LEVODOPA/ENTACAPONE [Suspect]
     Active Substance: CARBIDOPA\ENTACAPONE\LEVODOPA
     Indication: PRODUCT USED FOR UNKNOWN INDICATION
     Dosage: 150 MG X5
     Route: 065
  4. AMANTIDINE [Suspect]
     Active Substance: AMANTADINE
     Indication: PRODUCT USED FOR UNKNOWN INDICATION
     Dosage: 200/100MG
     Route: 065
  5. ALFUZOSIN [Suspect]
     Active Substance: ALFUZOSIN
     Indication: PRODUCT USED FOR UNKNOWN INDICATION
     Route: 065
  6. APOMORPHINE [Suspect]
     Active Substance: APOMORPHINE
     Indication: PRODUCT USED FOR UNKNOWN INDICATION
     Dosage: TAKEN FOR 3 YEARS. 3.5MG/HOUR DAY, 2.5MG/HOUR NIGHT
     Route: 065
     Dates: start: 2012

REACTIONS (13)
  - Pelvic fracture [Unknown]
  - Illusion [Unknown]
  - Fall [Unknown]
  - Depressed mood [Unknown]
  - Sensory disturbance [Unknown]
  - Rash [Unknown]
  - Soft tissue mass [Unknown]
  - Formication [Unknown]
  - Nasal discomfort [Unknown]
  - Skin haemorrhage [Unknown]
  - Oral discomfort [Not Recovered/Not Resolved]
  - Hallucination, visual [Unknown]
  - On and off phenomenon [Unknown]
